FAERS Safety Report 14707838 (Version 2)
Quarter: 2018Q2

REPORT INFORMATION
  Report Type: Report from Study
  Country: AU (occurrence: AU)
  Receive Date: 20180403
  Receipt Date: 20180410
  Transmission Date: 20180711
  Serious: Yes (Other)
  Sender: FDA-Public Use
  Company Number: PHHY2018AU057303

PATIENT
  Age: 37 Year
  Sex: Male

DRUGS (7)
  1. CLOZARIL [Suspect]
     Active Substance: CLOZAPINE
     Indication: SCHIZOPHRENIA
     Dosage: 850 MG, UNK
     Route: 048
     Dates: start: 19960314
  2. CLOZARIL [Suspect]
     Active Substance: CLOZAPINE
     Dosage: 2 DF, QD (PM)
     Route: 065
     Dates: start: 20110912
  3. RISPERIDONE. [Suspect]
     Active Substance: RISPERIDONE
     Indication: PRODUCT USED FOR UNKNOWN INDICATION
     Dosage: 1 DF, QD (AM)
     Route: 065
     Dates: start: 20170710
  4. DIAZEPAM. [Concomitant]
     Active Substance: DIAZEPAM
     Indication: PRODUCT USED FOR UNKNOWN INDICATION
     Dosage: UNK UNK, PRN
     Route: 065
     Dates: start: 20020808
  5. CLOZAPINE. [Suspect]
     Active Substance: CLOZAPINE
     Indication: PRODUCT USED FOR UNKNOWN INDICATION
     Dosage: 100 MG, UNK
     Route: 065
  6. CLOZAPINE. [Suspect]
     Active Substance: CLOZAPINE
     Dosage: 8 DF, QD (PM)
     Route: 065
     Dates: start: 20020808
  7. CIPRAMIL [Concomitant]
     Active Substance: CITALOPRAM HYDROBROMIDE
     Indication: PRODUCT USED FOR UNKNOWN INDICATION
     Dosage: 0.5 DF, QD
     Route: 065
     Dates: start: 20170927

REACTIONS (12)
  - Oesophageal candidiasis [Unknown]
  - Gastritis [Unknown]
  - Dyspepsia [Unknown]
  - Wrist fracture [Unknown]
  - Cholelithiasis [Unknown]
  - Hepatic steatosis [Unknown]
  - Radius fracture [Unknown]
  - Dysplasia [Unknown]
  - Umbilical hernia [Unknown]
  - Vitamin D deficiency [Unknown]
  - Glucose tolerance impaired [Unknown]
  - Rectal polyp [Unknown]

NARRATIVE: CASE EVENT DATE: 20030623
